FAERS Safety Report 17984812 (Version 1)
Quarter: 2020Q3

REPORT INFORMATION
  Report Type: Spontaneous
  Country: US (occurrence: US)
  Receive Date: 20200706
  Receipt Date: 20200706
  Transmission Date: 20201103
  Serious: No
  Sender: FDA-Public Use
  Company Number: US-VERTEX PHARMACEUTICALS-2020-014055

PATIENT
  Sex: Male

DRUGS (2)
  1. TRIKAFTA [Suspect]
     Active Substance: ELEXACAFTOR\IVACAFTOR\TEZACAFTOR
     Indication: CYSTIC FIBROSIS
     Dosage: 2X(100 MG ELEXA/ 50 MG TEZA/ 75 MG IVA) AM;  1X(150MG IVA) PM
     Route: 048
     Dates: start: 20191108
  2. LORATADINE. [Concomitant]
     Active Substance: LORATADINE

REACTIONS (1)
  - Sunburn [Unknown]
